FAERS Safety Report 4592407-7 (Version None)
Quarter: 2005Q1

REPORT INFORMATION
  Report Type: 
  Country: None (occurrence: None)
  Receive Date: 20050228
  Receipt Date: 20050113
  Transmission Date: 20050727
  Serious: Yes (Hospitalization)
  Sender: FDA-Public Use
  Company Number: US-BRISTOL-MYERS SQUIBB COMPANY-12825915

PATIENT
  Age: 57 Year
  Sex: Female

DRUGS (4)
  1. ABILIFY [Suspect]
     Indication: SCHIZOPHRENIA
     Dates: start: 20030131
  2. CLOZAPINE [Suspect]
     Indication: SCHIZOPHRENIA
     Route: 048
     Dates: start: 19990301
  3. NEURONTIN [Concomitant]
     Dates: start: 20020101
  4. ESKALITH [Concomitant]
     Dates: start: 20020101

REACTIONS (5)
  - DELUSION [None]
  - DIZZINESS [None]
  - FALL [None]
  - LOWER LIMB FRACTURE [None]
  - WHITE BLOOD CELL COUNT INCREASED [None]
